FAERS Safety Report 22948015 (Version 3)
Quarter: 2024Q2

REPORT INFORMATION
  Report Type: Spontaneous
  Country: US (occurrence: US)
  Receive Date: 20230915
  Receipt Date: 20240524
  Transmission Date: 20240715
  Serious: Yes (Life-Threatening, Hospitalization, Disabling, Other)
  Sender: FDA-Public Use
  Company Number: US-AMERICAN REGENT INC-2023002153

PATIENT
  Sex: Female
  Weight: 74.8 kg

DRUGS (9)
  1. FERRIC CARBOXYMALTOSE [Suspect]
     Active Substance: FERRIC CARBOXYMALTOSE
     Indication: Iron deficiency anaemia
     Dosage: 750 MILLIGRAM IN 150 CC NS, SINGLE
     Route: 042
     Dates: start: 20181129, end: 20181129
  2. FERRIC CARBOXYMALTOSE [Suspect]
     Active Substance: FERRIC CARBOXYMALTOSE
     Dosage: 750 MILLIGRAM IN 150 CC NS, SINGLE
     Route: 042
     Dates: start: 20230810, end: 20230810
  3. FERRIC CARBOXYMALTOSE [Suspect]
     Active Substance: FERRIC CARBOXYMALTOSE
     Dosage: 750 MILLIGRAM IN 150 CC NS, SINGLE
     Route: 042
     Dates: start: 20230817, end: 20230817
  4. XANAX [Concomitant]
     Active Substance: ALPRAZOLAM
     Indication: Anxiety
     Dosage: 0.5 MILLIGRAM, PRN
     Route: 048
     Dates: start: 20230731
  5. PROMETRIUM [Concomitant]
     Active Substance: PROGESTERONE
     Indication: Product used for unknown indication
     Dosage: 100 MILLIGRAM, TAKE 3 CAPSULES EACH NIGHT
     Route: 048
     Dates: start: 20230320
  6. COLACE [Concomitant]
     Active Substance: DOCUSATE SODIUM
     Indication: Constipation
     Dosage: 100 MILLIGRAM, BID AS NEEDED
     Route: 048
  7. MOTRIN [Concomitant]
     Active Substance: IBUPROFEN
     Indication: Pain
     Dosage: UNK
     Route: 048
  8. PERCOCET [Concomitant]
     Active Substance: ACETAMINOPHEN\OXYCODONE HYDROCHLORIDE
     Indication: Pain
     Dosage: 600 MILLIGRAM, PRN EVERY 6 HOURS AS NEEDED
     Route: 048
  9. SIMETHICONE (DIMETHICONE) [Concomitant]
     Active Substance: DIMETHICONE
     Indication: Flatulence
     Dosage: 80 MILLIGRAM, PRN EVERY 6 HOURS AS NEEDED
     Route: 048

REACTIONS (21)
  - Calcium deficiency [Recovered/Resolved]
  - Secondary hyperthyroidism [Unknown]
  - Loss of personal independence in daily activities [Not Recovered/Not Resolved]
  - Post-traumatic stress disorder [Not Recovered/Not Resolved]
  - Anxiety disorder [Not Recovered/Not Resolved]
  - Disorientation [Not Recovered/Not Resolved]
  - Heart rate decreased [Not Recovered/Not Resolved]
  - Burning sensation [Not Recovered/Not Resolved]
  - Gait inability [Not Recovered/Not Resolved]
  - Pain in extremity [Not Recovered/Not Resolved]
  - Asthenia [Unknown]
  - Myalgia [Not Recovered/Not Resolved]
  - Hypophosphataemia [Recovered/Resolved]
  - Chest pain [Not Recovered/Not Resolved]
  - Hypotension [Not Recovered/Not Resolved]
  - Paraesthesia [Unknown]
  - Dyspnoea [Unknown]
  - Muscle spasms [Not Recovered/Not Resolved]
  - Myopathy [Unknown]
  - Headache [Not Recovered/Not Resolved]
  - Diarrhoea [Not Recovered/Not Resolved]

NARRATIVE: CASE EVENT DATE: 20230101
